FAERS Safety Report 12515750 (Version 1)
Quarter: 2016Q2

REPORT INFORMATION
  Report Type: Spontaneous
  Country: US (occurrence: US)
  Receive Date: 20160630
  Receipt Date: 20160630
  Transmission Date: 20160815
  Serious: No
  Sender: FDA-Public Use
  Company Number: US-PFIZER INC-3116804

PATIENT
  Sex: Male

DRUGS (1)
  1. POTASSIUM ACETATE. [Suspect]
     Active Substance: POTASSIUM ACETATE

REACTIONS (4)
  - Laceration [Recovered/Resolved]
  - Foreign body [Recovered/Resolved]
  - Product container issue [Recovered/Resolved]
  - Accident at work [Recovered/Resolved]

NARRATIVE: CASE EVENT DATE: 20151216
